FAERS Safety Report 5739926-5 (Version None)
Quarter: 2008Q2

REPORT INFORMATION
  Report Type: 
  Country: None (occurrence: None)
  Receive Date: 20080516
  Receipt Date: 20080506
  Transmission Date: 20081010
  Serious: Yes (Other)
  Sender: FDA-Public Use
  Company Number: US-BAYER-200821730NA

PATIENT
  Age: 38 Year
  Sex: Female
  Weight: 66 kg

DRUGS (6)
  1. MIRENA [Suspect]
     Indication: MENORRHAGIA
     Route: 015
     Dates: start: 20050301
  2. MACROBID [Concomitant]
  3. GLUCOPHAGE [Concomitant]
  4. WELLBUTRIN [Concomitant]
  5. TETRACYCLIN [Concomitant]
  6. CYTEC [Concomitant]
     Indication: UTERINE CERVIX DILATION PROCEDURE

REACTIONS (14)
  - ACNE [None]
  - ANXIETY [None]
  - BLOOD GLUCOSE INCREASED [None]
  - BREAST TENDERNESS [None]
  - COMPLICATION OF DEVICE REMOVAL [None]
  - GENITAL HAEMORRHAGE [None]
  - HYPOGLYCAEMIA [None]
  - INFLUENZA [None]
  - IUD MIGRATION [None]
  - MENORRHAGIA [None]
  - MENSTRUAL DISORDER [None]
  - PROCEDURAL PAIN [None]
  - URINARY TRACT INFECTION [None]
  - WEIGHT INCREASED [None]
